FAERS Safety Report 24252663 (Version 2)
Quarter: 2024Q3

REPORT INFORMATION
  Report Type: Spontaneous
  Country: US (occurrence: US)
  Receive Date: 20240827
  Receipt Date: 20240902
  Transmission Date: 20241017
  Serious: No
  Sender: MSN LABORATORIES
  Company Number: US-MSNLABS-2024MSNSPO01814

PATIENT

DRUGS (5)
  1. LOSARTAN POTASSIUM [Suspect]
     Active Substance: LOSARTAN POTASSIUM
     Indication: Hypertension
     Route: 065
  2. LOSARTAN POTASSIUM [Suspect]
     Active Substance: LOSARTAN POTASSIUM
     Dosage: 2 TABLETS
     Route: 065
  3. NIFEDIPINE [Concomitant]
     Active Substance: NIFEDIPINE
     Dosage: EXTENDED RELEASE
     Route: 065
  4. NIFEDIPINE [Concomitant]
     Active Substance: NIFEDIPINE
  5. GABAPENTIN [Concomitant]
     Active Substance: GABAPENTIN
     Indication: Arthritis
     Dosage: 300 OR 600MG
     Route: 065

REACTIONS (10)
  - Gastrooesophageal reflux disease [Recovering/Resolving]
  - Oropharyngeal discomfort [Recovering/Resolving]
  - Oral discomfort [Recovering/Resolving]
  - Product substitution issue [Unknown]
  - Product quality issue [Unknown]
  - Product label issue [Unknown]
  - Product use complaint [Unknown]
  - Product taste abnormal [Unknown]
  - Tongue discolouration [Recovering/Resolving]
  - Dysgeusia [Recovering/Resolving]
